FAERS Safety Report 5542325-2 (Version None)
Quarter: 2007Q4

REPORT INFORMATION
  Report Type: 
  Country: None (occurrence: None)
  Receive Date: 20071210
  Receipt Date: 20071207
  Transmission Date: 20080405
  Serious: Yes (Death, Hospitalization)
  Sender: FDA-Public Use
  Company Number: US-ASTRAZENECA-2006UW00051

PATIENT
  Age: 73 Year
  Sex: Male
  Weight: 78.5 kg

DRUGS (11)
  1. SEROQUEL [Suspect]
     Indication: PARKINSON'S DISEASE
     Route: 048
     Dates: start: 20050325
  2. SEROQUEL [Suspect]
     Dosage: DECREASED
     Route: 048
     Dates: end: 20051125
  3. SYNTHROID [Concomitant]
  4. CARDIZEM [Concomitant]
  5. ARICEPT [Concomitant]
  6. SINEMET [Concomitant]
  7. LACTOSE [Concomitant]
  8. ASPIRIN [Concomitant]
  9. DILANTIN [Concomitant]
  10. LAMICTAL [Concomitant]
  11. MORPHINE [Concomitant]

REACTIONS (12)
  - AMMONIA INCREASED [None]
  - BLOOD GLUCOSE INCREASED [None]
  - CONVULSION [None]
  - DEHYDRATION [None]
  - DEMENTIA [None]
  - DIABETIC HYPEROSMOLAR COMA [None]
  - DISORIENTATION [None]
  - HYPERNATRAEMIA [None]
  - LOBAR PNEUMONIA [None]
  - MALNUTRITION [None]
  - SEPTIC SHOCK [None]
  - STAPHYLOCOCCAL INFECTION [None]
